FAERS Safety Report 8924981 (Version 2)
Quarter: 2013Q2

REPORT INFORMATION
  Report Type: Report from Study
  Country: DE (occurrence: DE)
  Receive Date: 20121126
  Receipt Date: 20130507
  Transmission Date: 20140414
  Serious: Yes (Death, Other)
  Sender: FDA-Public Use
  Company Number: DE-ROCHE-1159852

PATIENT
  Age: 58 Year
  Sex: Male

DRUGS (3)
  1. RIBAVIRIN [Suspect]
     Indication: HEPATITIS E
     Route: 065
  2. RIBAVIRIN [Suspect]
     Route: 065
  3. RIBAVIRIN [Suspect]
     Route: 065

REACTIONS (5)
  - Hepatic failure [Fatal]
  - Anaemia [Unknown]
  - Hepatic cirrhosis [Unknown]
  - Varices oesophageal [Unknown]
  - Ascites [Unknown]
